FAERS Safety Report 5653751-5 (Version None)
Quarter: 2008Q1

REPORT INFORMATION
  Report Type: 
  Country: None (occurrence: None)
  Receive Date: 20080205
  Receipt Date: 20071011
  Transmission Date: 20080703
  Serious: Yes (Other)
  Sender: FDA-Public Use
  Company Number: 524670

PATIENT
  Age: 50 Year
  Sex: Female
  Weight: 47.6 kg

DRUGS (1)
  1. BONIVA [Suspect]
     Indication: TYPE 2 DIABETES MELLITUS
     Dosage: 3 MG 1 PER 3 MONTH INTRAVENOUS
     Route: 042
     Dates: start: 20070415

REACTIONS (3)
  - ABDOMINAL PAIN [None]
  - DYSPEPSIA [None]
  - NAUSEA [None]
